FAERS Safety Report 8409615-7 (Version None)
Quarter: 2012Q2

REPORT INFORMATION
  Report Type: 
  Country: None (occurrence: None)
  Receive Date: 20120529
  Receipt Date: 20120515
  Transmission Date: 20120825
  Serious: Yes (Hospitalization, Other)
  Sender: FDA-Public Use
  Company Number: CIP11002926

PATIENT
  Age: 63 Year
  Sex: Female
  Weight: 75.9 kg

DRUGS (20)
  1. BONIVA [Suspect]
     Indication: OSTEOPOROSIS
     Dosage: 150 MG MONTHLY
     Dates: start: 20081216, end: 20110101
  2. HYDROCHLOROTHIAZIDE [Concomitant]
  3. MAGNESIUM OXIDE (MAGNESIUM OXIDE) [Concomitant]
  4. MULTIVITAMIN /00831701/ (VITAMINS NOS) [Concomitant]
  5. CALCIUM CARBONATE [Concomitant]
  6. ACIPHEX [Concomitant]
  7. CYMBALTA [Concomitant]
  8. CLONAZEPAM [Concomitant]
  9. FLONASE [Concomitant]
  10. NICOTROL [Concomitant]
  11. ACTONEL [Suspect]
     Indication: OSTEOPOROSIS
     Dosage: DOSAGE / REGIMEN, ORAL
     Route: 048
     Dates: start: 20041111, end: 20081216
  12. FISH OIL (FISH OIL) [Concomitant]
  13. ZOLOFT [Concomitant]
  14. COMBIVENT [Concomitant]
  15. POTASSIUM GLUCONATE TAB [Concomitant]
  16. VITAMIN D /00318501/ (COELCALCIFEROL) [Concomitant]
  17. FIORINAL /00090401/ (ACETYLSALICYLIC ACID, BUTALBITAL, CAFFEINE, PHENA [Concomitant]
  18. FLAXSEED OIL (LINUM USITATISSIMUM SEED OIL) [Concomitant]
  19. ASPIRIN [Concomitant]
  20. ROBAXIN [Concomitant]

REACTIONS (9)
  - STRESS FRACTURE [None]
  - PAIN IN EXTREMITY [None]
  - FALL [None]
  - FEMUR FRACTURE [None]
  - BURSITIS [None]
  - OSTEONECROSIS [None]
  - IMPACTED FRACTURE [None]
  - RIB FRACTURE [None]
  - FRACTURE NONUNION [None]
